FAERS Safety Report 6716690-4 (Version None)
Quarter: 2010Q2

REPORT INFORMATION
  Report Type: 
  Country: None (occurrence: None)
  Receive Date: 20100510
  Receipt Date: 20100429
  Transmission Date: 20101027
  Serious: Yes (Hospitalization)
  Sender: FDA-Public Use
  Company Number: US-BIOGENIDEC-2010BI014232

PATIENT
  Age: 46 Year
  Sex: Female
  Weight: 77 kg

DRUGS (1)
  1. AVONEX [Suspect]
     Indication: MULTIPLE SCLEROSIS
     Route: 030
     Dates: start: 20070101

REACTIONS (9)
  - ABASIA [None]
  - COGNITIVE DISORDER [None]
  - DYSPNOEA [None]
  - FEELING ABNORMAL [None]
  - INTERNATIONAL NORMALISED RATIO INCREASED [None]
  - MUSCULOSKELETAL CHEST PAIN [None]
  - PALLOR [None]
  - PULMONARY EMBOLISM [None]
  - SYNCOPE [None]
